FAERS Safety Report 4282543-7 (Version None)
Quarter: 2004Q1

REPORT INFORMATION
  Report Type: 
  Country: None (occurrence: None)
  Receive Date: 20040129
  Receipt Date: 20040114
  Transmission Date: 20041129
  Serious: Yes (Death)
  Sender: FDA-Public Use
  Company Number: 204269

PATIENT
  Age: 70 Year
  Sex: Female
  Weight: 44.4 kg

DRUGS (8)
  1. XOLAIR [Suspect]
     Indication: ASTHMA
     Dosage: 300 MG, Q4W, SUBCUTANEOUS
     Route: 058
     Dates: start: 20031204
  2. VENTOLIN (ALBUTEROL SULFATE, ALBUTEROL) [Concomitant]
  3. FOSAMAX [Concomitant]
  4. NASACORT SPRAY (TRIAMCINOLONE ACETONIDE) [Concomitant]
  5. PULMICORT [Concomitant]
  6. SINGULAIR [Concomitant]
  7. CLARINEX [Concomitant]
  8. PREDNISONE [Concomitant]

REACTIONS (2)
  - RESPIRATORY FAILURE [None]
  - STATUS ASTHMATICUS [None]
